FAERS Safety Report 4998013-4 (Version None)
Quarter: 2006Q2

REPORT INFORMATION
  Report Type: 
  Country: None (occurrence: None)
  Receive Date: 20060508
  Receipt Date: 20060427
  Transmission Date: 20061013
  Serious: No
  Sender: FDA-Public Use
  Company Number: 06H-163-0307930-00

PATIENT
  Age: 26 Year
  Sex: Female

DRUGS (2)
  1. EPHEDRINE SULFATE INJECTION (EPHEDRINE SULFATE ) (EPHEDRINE SULFATE) [Suspect]
     Indication: HYPOTENSION
     Dosage: 10 MG, INTRAVENOUS
     Route: 042
  2. EPHEDRINE SULFATE INJECTION (EPHEDRINE SULFATE ) (EPHEDRINE SULFATE) [Suspect]
     Indication: PROPHYLAXIS
     Dosage: 10 MG, INTRAVENOUS
     Route: 042

REACTIONS (6)
  - ACUTE CORONARY SYNDROME [None]
  - CARDIAC DISORDER [None]
  - DRUG EXPOSURE DURING PREGNANCY [None]
  - INJURY [None]
  - MYOCARDIAL ISCHAEMIA [None]
  - VENTRICULAR TACHYCARDIA [None]
